FAERS Safety Report 4622371-3 (Version None)
Quarter: 2005Q1

REPORT INFORMATION
  Report Type: 
  Country: None (occurrence: None)
  Receive Date: 20050328
  Receipt Date: 20050315
  Transmission Date: 20050727
  Serious: Yes (Life-Threatening, Hospitalization)
  Sender: FDA-Public Use
  Company Number: 2005045244

PATIENT
  Age: 36 Year
  Sex: Female

DRUGS (1)
  1. DEPO-PROVERA [Suspect]
     Indication: CONTRACEPTION
     Dosage: 150 MG/ML (150 MG, ONE SINGLE INJECTION)
     Dates: start: 20040505, end: 20040505

REACTIONS (3)
  - LOCALISED INFECTION [None]
  - PHARMACEUTICAL PRODUCT COMPLAINT [None]
  - SEPSIS [None]
